FAERS Safety Report 7204173-7 (Version None)
Quarter: 2010Q4

REPORT INFORMATION
  Report Type: 
  Country: None (occurrence: None)
  Receive Date: 20101230
  Receipt Date: 20101123
  Transmission Date: 20110411
  Serious: Yes (Hospitalization, Other)
  Sender: FDA-Public Use
  Company Number: US-BAYER-201014473NA

PATIENT
  Sex: Female
  Weight: 58 kg

DRUGS (12)
  1. YASMIN [Suspect]
     Indication: ORAL CONTRACEPTION
     Dosage: AS USED DOSE: UNK
     Route: 048
     Dates: start: 20020801, end: 20080215
  2. YASMIN [Suspect]
     Indication: ACNE
  3. FISH OIL [Concomitant]
     Dates: start: 20071001, end: 20080415
  4. NAPROXEN [Concomitant]
     Dates: start: 20040401, end: 20041215
  5. IMITREX [Concomitant]
     Dates: start: 20050301, end: 20060115
  6. RELPAX [Concomitant]
     Dates: start: 20060201
  7. VERAPAMIL [Concomitant]
     Dates: start: 20050501
  8. TRAMADOL HYDROCHLORIDE [Concomitant]
  9. ASTELIN [Concomitant]
  10. TRAMADOL HCL CF [Concomitant]
  11. CELEBREX [Concomitant]
     Indication: PRODUCT USED FOR UNKNOWN INDICATION
  12. MULTIVITAMIN [Concomitant]
     Indication: PRODUCT USED FOR UNKNOWN INDICATION

REACTIONS (8)
  - ATELECTASIS [None]
  - DEEP VEIN THROMBOSIS [None]
  - DYSPNOEA [None]
  - HEART RATE IRREGULAR [None]
  - OEDEMA PERIPHERAL [None]
  - PAIN IN EXTREMITY [None]
  - PULMONARY EMBOLISM [None]
  - SYNCOPE [None]
